FAERS Safety Report 6480187-X (Version None)
Quarter: 2009Q4

REPORT INFORMATION
  Report Type: 
  Country: None (occurrence: None)
  Receive Date: 20091208
  Receipt Date: 20090303
  Transmission Date: 20100525
  Serious: No
  Sender: FDA-Public Use
  Company Number: US-AMGEN-KDL336662

PATIENT
  Sex: Female

DRUGS (1)
  1. ENBREL [Suspect]
     Indication: RHEUMATOID ARTHRITIS
     Route: 058
     Dates: start: 20080703

REACTIONS (8)
  - ASTHENIA [None]
  - FATIGUE [None]
  - INSOMNIA [None]
  - JOINT SWELLING [None]
  - NUTRITIONAL CONDITION ABNORMAL [None]
  - RHEUMATOID ARTHRITIS [None]
  - STRESS [None]
  - VOMITING [None]
